FAERS Safety Report 7393741-8 (Version None)
Quarter: 2011Q1

REPORT INFORMATION
  Report Type: 
  Country: None (occurrence: None)
  Receive Date: 20110331
  Receipt Date: 20110331
  Transmission Date: 20110831
  Serious: No
  Sender: FDA-Public Use
  Company Number: None

PATIENT
  Sex: Female

DRUGS (1)
  1. PAROXETINE HCL [Suspect]
     Dosage: 20MG 1 A DAY ORAL
     Route: 048

REACTIONS (9)
  - HEADACHE [None]
  - NO THERAPEUTIC RESPONSE [None]
  - CRYING [None]
  - PYREXIA [None]
  - PARANOIA [None]
  - SUICIDAL IDEATION [None]
  - HYPERHIDROSIS [None]
  - AGITATION [None]
  - SUSPICIOUSNESS [None]
